FAERS Safety Report 13755292 (Version 1)
Quarter: 2017Q3

REPORT INFORMATION
  Report Type: Spontaneous
  Country: FR (occurrence: FR)
  Receive Date: 20170714
  Receipt Date: 20170714
  Transmission Date: 20171127
  Serious: Yes (Life-Threatening, Hospitalization, Other)
  Sender: FDA-Public Use
  Company Number: FR-BAXTER-2017BAX027288

PATIENT
  Age: 26 Year
  Sex: Female
  Weight: 50 kg

DRUGS (24)
  1. PREDNISONE. [Suspect]
     Active Substance: PREDNISONE
     Dosage: SECOND COURSE OF R-CHOP THERAPY
     Route: 065
     Dates: start: 20140424
  2. PROCARBAZINE [Suspect]
     Active Substance: PROCARBAZINE
     Indication: LYMPHOMA
     Dosage: FIRST COURSE OF BEACOPP THERAPY
     Route: 065
     Dates: start: 201405
  3. CELLTOP 100 MG/5 ML, SOLUTION INJECTABLE POUR PERFUSION [Suspect]
     Active Substance: ETOPOSIDE
     Indication: LYMPHOMA
     Dosage: FIRST COURSE OF BEACOPP THERAPY
     Route: 065
     Dates: start: 201405
  4. MABTHERA [Suspect]
     Active Substance: RITUXIMAB
     Indication: LYMPHOMA
     Dosage: FIRST COURSE OF R-CHOP THERAPY
     Route: 065
     Dates: start: 20140403
  5. ADRIAMYCIN [Suspect]
     Active Substance: DOXORUBICIN HYDROCHLORIDE
     Dosage: SECOND COURSE OF BEACOPP  THERAPY
     Route: 065
     Dates: start: 20140605
  6. PREDNISONE. [Suspect]
     Active Substance: PREDNISONE
     Indication: LYMPHOMA
     Dosage: FIRST COURSE OF R-CHOP THERAPY
     Route: 065
     Dates: start: 20140403
  7. MABTHERA [Suspect]
     Active Substance: RITUXIMAB
     Dosage: SECOND COURSE OF R-CHOP THERAPY
     Route: 065
     Dates: start: 20140424
  8. ADRIAMYCIN [Suspect]
     Active Substance: DOXORUBICIN HYDROCHLORIDE
     Indication: LYMPHOMA
     Dosage: FIRST COURSE OF R-CHOP THERAPY
     Route: 065
     Dates: start: 20140403
  9. ONCOVIN [Suspect]
     Active Substance: VINCRISTINE SULFATE
     Dosage: SECOND COURSE OF R-CHOP THERAPY
     Route: 065
     Dates: start: 20140424
  10. ONCOVIN [Suspect]
     Active Substance: VINCRISTINE SULFATE
     Dosage: FIRST COURSE OF BEACOPP THERAPY
     Route: 065
     Dates: start: 201405
  11. PROCARBAZINE [Suspect]
     Active Substance: PROCARBAZINE
     Dosage: SECOND COURSE OF BEACOPP THERAPY
     Route: 065
     Dates: start: 20140605
  12. ONCOVIN [Suspect]
     Active Substance: VINCRISTINE SULFATE
     Dosage: SECOND COURSE OF BEACOPP THERAPY
     Route: 065
     Dates: start: 20140605
  13. PREDNISONE. [Suspect]
     Active Substance: PREDNISONE
     Dosage: SECOND COURSE OF BEACOPP THERAPY
     Route: 065
     Dates: start: 20140605
  14. BLEOMYCIN [Suspect]
     Active Substance: BLEOMYCIN SULFATE
     Indication: LYMPHOMA
     Dosage: FIRST COURSE OF BEACOPP THERAPY
     Route: 065
     Dates: start: 201405
  15. ENDOXAN 1000 MG, POUDRE POUR SOLUTION INJECTABLE [Suspect]
     Active Substance: CYCLOPHOSPHAMIDE
     Dosage: FIRST COURSE OF BEACOPP THERAPY
     Route: 065
     Dates: start: 201405
  16. ADRIAMYCIN [Suspect]
     Active Substance: DOXORUBICIN HYDROCHLORIDE
     Dosage: FIRST COURSE OF BEACOPP  THERAPY
     Route: 065
     Dates: start: 201405
  17. ENDOXAN 1000 MG, POUDRE POUR SOLUTION INJECTABLE [Suspect]
     Active Substance: CYCLOPHOSPHAMIDE
     Indication: LYMPHOMA
     Dosage: FIRST COURSE OF R-CHOP THERAPY
     Route: 065
     Dates: start: 20140403
  18. ENDOXAN 1000 MG, POUDRE POUR SOLUTION INJECTABLE [Suspect]
     Active Substance: CYCLOPHOSPHAMIDE
     Dosage: SECOND COURSE OF R-CHOP THERAPY
     Route: 065
     Dates: start: 20140424
  19. CELLTOP 100 MG/5 ML, SOLUTION INJECTABLE POUR PERFUSION [Suspect]
     Active Substance: ETOPOSIDE
     Dosage: SECOND COURSE OF BEACOPP THERAPY
     Route: 065
     Dates: start: 20140605
  20. PREDNISONE. [Suspect]
     Active Substance: PREDNISONE
     Dosage: FIRST COURSE OF BEACOPP THERAPY
     Route: 065
     Dates: start: 201405
  21. ONCOVIN [Suspect]
     Active Substance: VINCRISTINE SULFATE
     Indication: LYMPHOMA
     Dosage: FIRST COURSE OF R-CHOP THERAPY
     Route: 065
     Dates: start: 20140403
  22. ENDOXAN 1000 MG, POUDRE POUR SOLUTION INJECTABLE [Suspect]
     Active Substance: CYCLOPHOSPHAMIDE
     Dosage: SECOND COURSE OF BEACOPP THERAPY
     Route: 065
     Dates: start: 20140605
  23. ADRIAMYCIN [Suspect]
     Active Substance: DOXORUBICIN HYDROCHLORIDE
     Dosage: SECOND COURSE OF R-CHOP THERAPY
     Route: 065
     Dates: start: 20140424
  24. BLEOMYCIN [Suspect]
     Active Substance: BLEOMYCIN SULFATE
     Dosage: SECOND COURSE OF BEACOPP THERAPY
     Route: 065
     Dates: start: 20140605

REACTIONS (4)
  - Premature labour [Recovered/Resolved]
  - Exposure during pregnancy [Recovered/Resolved]
  - Drug ineffective [Unknown]
  - Premature delivery [Recovered/Resolved]

NARRATIVE: CASE EVENT DATE: 20140403
